FAERS Safety Report 6279544-6 (Version None)
Quarter: 2009Q3

REPORT INFORMATION
  Report Type: 
  Country: None (occurrence: None)
  Receive Date: 20090723
  Receipt Date: 20090710
  Transmission Date: 20100115
  Serious: Yes (Other)
  Sender: FDA-Public Use
  Company Number: JP-JNJCH-2009011644

PATIENT
  Age: 41 Year
  Sex: Male

DRUGS (1)
  1. CETIRIZINE HYDROCHLORIDE [Suspect]
     Indication: RHINITIS ALLERGIC
     Dosage: TEXT:10 MG
     Route: 048
     Dates: start: 20090216, end: 20090408

REACTIONS (1)
  - VENTRICULAR EXTRASYSTOLES [None]
